FAERS Safety Report 6562455-6 (Version None)
Quarter: 2010Q1

REPORT INFORMATION
  Report Type: 
  Country: None (occurrence: None)
  Receive Date: 20100130
  Receipt Date: 20091105
  Transmission Date: 20100710
  Serious: No
  Sender: FDA-Public Use
  Company Number: US-ABBOTT-09P-163-0607737-00

PATIENT
  Sex: Female
  Weight: 119.4 kg

DRUGS (5)
  1. HUMIRA [Suspect]
     Indication: PSORIATIC ARTHROPATHY
     Dates: start: 20070101
  2. METHOTREXATE [Concomitant]
     Indication: PSORIASIS
  3. CALCIUM [Concomitant]
     Indication: OSTEOPOROSIS
  4. VITAMIN D [Concomitant]
     Indication: OSTEOPOROSIS
  5. HORMONE REPLACEMENT [Concomitant]
     Indication: VULVOVAGINAL PRURITUS

REACTIONS (1)
  - SCIATICA [None]
